FAERS Safety Report 5227768-9 (Version None)
Quarter: 2007Q1

REPORT INFORMATION
  Report Type: 
  Country: None (occurrence: None)
  Receive Date: 20070202
  Receipt Date: 20070123
  Transmission Date: 20070707
  Serious: Yes (Other)
  Sender: FDA-Public Use
  Company Number: JP-PFIZER INC-2007007461

PATIENT
  Age: 56 Year
  Sex: Female

DRUGS (2)
  1. PHARMORUBICIN [Suspect]
     Dosage: DAILY DOSE:70MG
     Route: 042
  2. ENDOXAN [Suspect]
     Dosage: DAILY DOSE:700MG
     Route: 042

REACTIONS (3)
  - FATIGUE [None]
  - HYPOACUSIS [None]
  - MALAISE [None]
